FAERS Safety Report 26089058 (Version 1)
Quarter: 2025Q4

REPORT INFORMATION
  Report Type: Spontaneous
  Country: US (occurrence: US)
  Receive Date: 20251125
  Receipt Date: 20251125
  Transmission Date: 20260118
  Serious: No
  Sender: SANOFI AVENTIS
  Company Number: US-SA-2025SA349935

PATIENT
  Sex: Female
  Weight: 63.64 kg

DRUGS (10)
  1. DUPIXENT [Suspect]
     Active Substance: DUPILUMAB
     Indication: Illness
     Dosage: 200 MG, QOW
     Route: 058
  2. BETA CAROTENE [Concomitant]
     Active Substance: BETA CAROTENE
     Dosage: UNK
  3. GRAPESEED [Concomitant]
     Dosage: UNK
  4. LUTEIN ZEAXANTHIN [Concomitant]
     Dosage: UNK
  5. PREDNISONE [Concomitant]
     Active Substance: PREDNISONE
     Dosage: UNK
  6. AZITHROMYCIN [Concomitant]
     Active Substance: AZITHROMYCIN
     Dosage: UNK
  7. CETIRIZINE HYDROCHLORIDE [Concomitant]
     Active Substance: CETIRIZINE HYDROCHLORIDE
     Dosage: UNK
  8. SYMBICORT [Concomitant]
     Active Substance: BUDESONIDE\FORMOTEROL FUMARATE DIHYDRATE
     Dosage: UNK
  9. VENTOLIN HFA [Concomitant]
     Active Substance: ALBUTEROL SULFATE
     Dosage: UNK
  10. JENTADUETO XR [Concomitant]
     Active Substance: LINAGLIPTIN\METFORMIN HYDROCHLORIDE
     Dosage: UNK

REACTIONS (6)
  - Pain in extremity [Unknown]
  - Hypoaesthesia [Unknown]
  - Mobility decreased [Unknown]
  - Tremor [Unknown]
  - Accidental exposure to product [Unknown]
  - Exposure via skin contact [Unknown]
